FAERS Safety Report 14200514 (Version 1)
Quarter: 2017Q4

REPORT INFORMATION
  Report Type: Spontaneous
  Country: CH (occurrence: CH)
  Receive Date: 20171117
  Receipt Date: 20171117
  Transmission Date: 20180321
  Serious: Yes (Other)
  Sender: FDA-Public Use
  Company Number: CH-MYLANLABS-2017M1072101

PATIENT
  Age: 16 Year
  Sex: Male

DRUGS (6)
  1. FLOXYFRAL [Suspect]
     Active Substance: FLUVOXAMINE
     Dosage: 75 MG, QD
     Route: 048
     Dates: start: 201612, end: 201701
  2. FLOXYFRAL [Suspect]
     Active Substance: FLUVOXAMINE
     Dosage: 100 MG, QD
     Route: 048
     Dates: start: 201701, end: 201707
  3. FLOXYFRAL [Suspect]
     Active Substance: FLUVOXAMINE
     Indication: DEPRESSION
     Dosage: 25 MG/D
     Route: 048
     Dates: start: 201611
  4. FLOXYFRAL [Suspect]
     Active Substance: FLUVOXAMINE
     Dosage: 125 MG/D
     Route: 048
  5. FLOXYFRAL [Suspect]
     Active Substance: FLUVOXAMINE
     Dosage: 75 MG, QD
     Route: 048
     Dates: start: 201707
  6. FLOXYFRAL [Suspect]
     Active Substance: FLUVOXAMINE
     Dosage: 50 MG/D
     Route: 048
     Dates: start: 2016, end: 201612

REACTIONS (6)
  - Inappropriate schedule of drug administration [Not Recovered/Not Resolved]
  - Intentional self-injury [Unknown]
  - Depression [Unknown]
  - Off label use [Not Recovered/Not Resolved]
  - Drug dose omission [Unknown]
  - Negative thoughts [Not Recovered/Not Resolved]

NARRATIVE: CASE EVENT DATE: 201611
